FAERS Safety Report 10275320 (Version 1)
Quarter: 2014Q2

REPORT INFORMATION
  Report Type: Spontaneous
  Country: US (occurrence: None)
  Receive Date: 20140630
  Receipt Date: 20140630
  Transmission Date: 20141212
  Serious: Yes (Other)
  Sender: FDA-Public Use
  Company Number: None

PATIENT
  Age: 28 Year
  Sex: Female
  Weight: 81.65 kg

DRUGS (3)
  1. NUVARING [Suspect]
     Indication: CONTRACEPTION
     Dosage: 1 RING  Q3 WEEKS VAGINAL
     Route: 067
     Dates: start: 20090601, end: 20130910
  2. ZYRTEC [Concomitant]
  3. ATIVAN [Concomitant]

REACTIONS (1)
  - Alopecia [None]
